FAERS Safety Report 16094675 (Version 2)
Quarter: 2019Q1

REPORT INFORMATION
  Report Type: Spontaneous
  Country: JP (occurrence: JP)
  Receive Date: 20190320
  Receipt Date: 20190327
  Transmission Date: 20190418
  Serious: Yes (Other)
  Sender: FDA-Public Use
  Company Number: PHJP2019JP003354

PATIENT
  Sex: Male

DRUGS (2)
  1. SANDOSTATIN [Concomitant]
     Active Substance: OCTREOTIDE ACETATE
     Indication: GASTROENTEROPANCREATIC NEUROENDOCRINE TUMOUR DISEASE
     Dosage: UNK
     Route: 030
  2. AFINITOR [Suspect]
     Active Substance: EVEROLIMUS
     Indication: GASTROENTEROPANCREATIC NEUROENDOCRINE TUMOUR DISEASE
     Dosage: 10 MG, QD
     Route: 048

REACTIONS (1)
  - Interstitial lung disease [Recovering/Resolving]
